FAERS Safety Report 6054369-5 (Version None)
Quarter: 2009Q1

REPORT INFORMATION
  Report Type: 
  Country: None (occurrence: None)
  Receive Date: 20090123
  Receipt Date: 20090123
  Transmission Date: 20090719
  Serious: Yes (Life-Threatening, Hospitalization)
  Sender: FDA-Public Use
  Company Number: None

PATIENT
  Age: 29 Year
  Sex: Male
  Weight: 72.3 kg

DRUGS (1)
  1. CHANTIX [Suspect]

REACTIONS (4)
  - AMNESIA [None]
  - DEPRESSION [None]
  - INCORRECT DOSE ADMINISTERED [None]
  - STRESS [None]
